FAERS Safety Report 7803275-1 (Version None)
Quarter: 2011Q4

REPORT INFORMATION
  Report Type: 
  Country: None (occurrence: None)
  Receive Date: 20111007
  Receipt Date: 20110927
  Transmission Date: 20120403
  Serious: Yes (Other)
  Sender: FDA-Public Use
  Company Number: DE-PFIZER INC-2011229963

PATIENT
  Age: 58 Year
  Sex: Female

DRUGS (1)
  1. TEMSIROLIMUS [Suspect]
     Indication: BLADDER CANCER
     Dosage: 25 MG, WEEKLY, 15 CYCLES
     Route: 042
     Dates: start: 20090901, end: 20100101

REACTIONS (3)
  - PERFORMANCE STATUS DECREASED [None]
  - QUALITY OF LIFE DECREASED [None]
  - MUCOSAL INFLAMMATION [None]
